FAERS Safety Report 8596634-3 (Version None)
Quarter: 2012Q3

REPORT INFORMATION
  Report Type: 
  Country: None (occurrence: None)
  Receive Date: 20120815
  Receipt Date: 20120808
  Transmission Date: 20120928
  Serious: Yes (Other)
  Sender: FDA-Public Use
  Company Number: CHPA2012US016957

PATIENT
  Age: 64 Year
  Sex: Female

DRUGS (10)
  1. INSULIN [Concomitant]
  2. VOLTAREN [Suspect]
     Indication: PAIN IN EXTREMITY
     Dosage: 4 G, BID PRN
     Route: 061
     Dates: start: 20080101, end: 20120801
  3. LASIX [Concomitant]
  4. SYNTHROID [Concomitant]
  5. MEDROL [Concomitant]
  6. MORPHINE [Concomitant]
  7. TOPROL-XL [Concomitant]
  8. FLEXERIL [Concomitant]
  9. NUVIGIL [Concomitant]
  10. OXYCODONE [Concomitant]

REACTIONS (7)
  - VENOUS RECANALISATION [None]
  - OFF LABEL USE [None]
  - FLUID RETENTION [None]
  - CELLULITIS [None]
  - THROMBOSIS [None]
  - UNDERDOSE [None]
  - PAIN [None]
